FAERS Safety Report 20362173 (Version 1)
Quarter: 2022Q1

REPORT INFORMATION
  Report Type: Spontaneous
  Country: IR (occurrence: IR)
  Receive Date: 20220121
  Receipt Date: 20220121
  Transmission Date: 20220424
  Serious: Yes (Other)
  Sender: FDA-Public Use
  Company Number: IR-MYLANLABS-2022M1005722

PATIENT
  Age: 3 Decade
  Sex: Female

DRUGS (6)
  1. METHOTREXATE [Suspect]
     Active Substance: METHOTREXATE
     Indication: Pustular psoriasis
     Dosage: UNK
     Route: 065
  2. ACITRETIN [Suspect]
     Active Substance: ACITRETIN
     Indication: Pustular psoriasis
     Dosage: UNK
     Route: 065
  3. CYCLOSPORINE [Suspect]
     Active Substance: CYCLOSPORINE
     Indication: Pustular psoriasis
     Dosage: UNK
     Route: 065
  4. ETANERCEPT [Suspect]
     Active Substance: ETANERCEPT
     Indication: Pustular psoriasis
     Dosage: UNK
     Route: 065
  5. PREDNISOLONE [Concomitant]
     Active Substance: PREDNISOLONE
     Indication: Pustular psoriasis
     Dosage: 10 MILLIGRAM, QD
     Route: 048
  6. INFLIXIMAB [Concomitant]
     Active Substance: INFLIXIMAB
     Indication: Pustular psoriasis
     Dosage: 200 MILLIGRAM, EVERY 8 WEEKS
     Route: 065

REACTIONS (1)
  - Drug ineffective [Unknown]
